FAERS Safety Report 20538366 (Version 1)
Quarter: 2022Q1

REPORT INFORMATION
  Report Type: Spontaneous
  Country: RU (occurrence: RU)
  Receive Date: 20220302
  Receipt Date: 20220302
  Transmission Date: 20220423
  Serious: Yes (Hospitalization)
  Sender: FDA-Public Use
  Company Number: RU-MYLANLABS-2022M1016415

PATIENT
  Age: 6 Decade
  Sex: Female

DRUGS (13)
  1. TOBRAMYCIN [Suspect]
     Active Substance: TOBRAMYCIN
     Indication: Symptomatic treatment
     Dosage: UNK, LOCAL CONSERVATIVE TREATMENT
     Route: 065
  2. LEVOFLOXACIN [Suspect]
     Active Substance: LEVOFLOXACIN
     Indication: Conjunctivitis
     Dosage: UNK, IN THE FORM OF INSTILLATIONS INTO THE CONJUNCTIVAL SAC
     Route: 047
  3. LEVOFLOXACIN [Suspect]
     Active Substance: LEVOFLOXACIN
     Indication: Keratitis bacterial
  4. OFLOXACIN [Suspect]
     Active Substance: OFLOXACIN
     Indication: Symptomatic treatment
     Dosage: UNK
     Route: 065
  5. CEFUROXIME [Suspect]
     Active Substance: CEFUROXIME
     Indication: Symptomatic treatment
     Dosage: UNK
     Route: 042
  6. CIPROFLOXACIN HYDROCHLORIDE\DEXAMETHASONE [Suspect]
     Active Substance: CIPROFLOXACIN HYDROCHLORIDE\DEXAMETHASONE
     Indication: Keratitis bacterial
     Dosage: UNK, INSTILLED IT INTO THE LEFT CONJUNCTIVAL SAC
     Route: 047
  7. CIPROFLOXACIN HYDROCHLORIDE\DEXAMETHASONE [Suspect]
     Active Substance: CIPROFLOXACIN HYDROCHLORIDE\DEXAMETHASONE
     Indication: Conjunctivitis
  8. LEVOFLOXACIN HEMIHYDRATE [Suspect]
     Active Substance: LEVOFLOXACIN
     Indication: Evidence based treatment
     Dosage: UNK, MASSIVE DOSES OF ANTIBACTERIAL
     Route: 065
  9. LEVOFLOXACIN HEMIHYDRATE [Suspect]
     Active Substance: LEVOFLOXACIN
     Indication: Antibiotic therapy
  10. TOBREX [Suspect]
     Active Substance: TOBRAMYCIN
     Indication: Antibiotic therapy
     Dosage: UNK, MASSIVE DOSES OF ANTIBACTERIAL
     Route: 065
  11. TOBREX [Suspect]
     Active Substance: TOBRAMYCIN
     Indication: Evidence based treatment
  12. ACYCLOVIR [Concomitant]
     Active Substance: ACYCLOVIR
     Indication: Symptomatic treatment
     Dosage: UNK
     Route: 042
  13. ACYCLOVIR [Concomitant]
     Active Substance: ACYCLOVIR
     Indication: Symptomatic treatment
     Dosage: UNK
     Route: 065

REACTIONS (10)
  - Keratitis fungal [Recovered/Resolved]
  - Corneal disorder [Recovered/Resolved]
  - Corneal erosion [Recovered/Resolved]
  - Corneal infiltrates [Recovered/Resolved]
  - Hypopyon [Recovered/Resolved]
  - Eyelid disorder [Recovered/Resolved]
  - Pupillary block [Recovered/Resolved]
  - Sinus disorder [Recovered/Resolved]
  - Ocular hypertension [Recovered/Resolved]
  - Corneal perforation [Recovered/Resolved]
